FAERS Safety Report 12735000 (Version 2)
Quarter: 2016Q3

REPORT INFORMATION
  Report Type: Report from Study
  Country: ES (occurrence: ES)
  Receive Date: 20160913
  Receipt Date: 20160914
  Transmission Date: 20161109
  Serious: Yes (Other)
  Sender: FDA-Public Use
  Company Number: ES-BAXTER-2016BAX045988

PATIENT
  Age: 48 Year

DRUGS (18)
  1. GENOXAL [Suspect]
     Active Substance: CYCLOPHOSPHAMIDE
     Dosage: COMPLETE DOSE, 1029 MG TOTAL DOSE
     Route: 065
     Dates: start: 20120306, end: 20120308
  2. FLUDARABINE [Suspect]
     Active Substance: FLUDARABINE PHOSPHATE
     Dosage: COMPLETE DOSE, 129 MG TOTAL DOSE
     Route: 065
     Dates: start: 20120501, end: 20120503
  3. GENOXAL [Suspect]
     Active Substance: CYCLOPHOSPHAMIDE
     Dosage: COMPLETE DOSE, 1029 MG TOTAL DOSE
     Route: 065
     Dates: start: 20120207, end: 20120209
  4. GENOXAL [Suspect]
     Active Substance: CYCLOPHOSPHAMIDE
     Dosage: COMPLETE DOSE, 1029 MG TOTAL DOSE
     Route: 065
     Dates: start: 20120403, end: 20120405
  5. GENOXAL [Suspect]
     Active Substance: CYCLOPHOSPHAMIDE
     Dosage: COMPLETE DOSE, 1029 MG TOTAL DOSE
     Route: 065
     Dates: start: 20120501, end: 20120503
  6. RITUXIMAB [Suspect]
     Active Substance: RITUXIMAB
     Dosage: COMPLETE DOSE, 856 MG TOTAL DOSE
     Route: 065
     Dates: start: 20120207, end: 20120209
  7. RITUXIMAB [Suspect]
     Active Substance: RITUXIMAB
     Dosage: COMPLETE DOSE, 856 MG TOTAL DOSE
     Route: 065
     Dates: start: 20120306, end: 20120308
  8. RITUXIMAB [Suspect]
     Active Substance: RITUXIMAB
     Dosage: COMPLETE DOSE, 856 MG TOTAL DOSE
     Route: 065
     Dates: start: 20160403, end: 20160405
  9. FLUDARABINE [Suspect]
     Active Substance: FLUDARABINE PHOSPHATE
     Dosage: COMPLETE DOSE, 129 MG TOTAL DOSE
     Route: 065
     Dates: start: 20120110, end: 20120112
  10. FLUDARABINE [Suspect]
     Active Substance: FLUDARABINE PHOSPHATE
     Dosage: COMPLETE DOSE, 129 MG TOTAL DOSE
     Route: 065
     Dates: start: 20120207, end: 20120209
  11. FLUDARABINE [Suspect]
     Active Substance: FLUDARABINE PHOSPHATE
     Dosage: COMPLETE DOSE, 129 MG TOTAL DOSE
     Route: 065
     Dates: start: 20120306, end: 20120308
  12. GENOXAL [Suspect]
     Active Substance: CYCLOPHOSPHAMIDE
     Dosage: COMPLETE DOSE, 1029 MG TOTAL DOSE
     Route: 065
     Dates: start: 20120110, end: 20120112
  13. RITUXIMAB [Suspect]
     Active Substance: RITUXIMAB
     Dosage: COMPLETE DOSE, 856 MG TOTAL DOSE
     Route: 065
     Dates: start: 20120110, end: 20120112
  14. RITUXIMAB [Suspect]
     Active Substance: RITUXIMAB
     Dosage: COMPLETE DOSE, 856 MG TOTAL DOSE
     Route: 065
     Dates: start: 20120501, end: 20120503
  15. RITUXIMAB [Suspect]
     Active Substance: RITUXIMAB
     Indication: CHRONIC LYMPHOCYTIC LEUKAEMIA
     Dosage: COMPLETE DOSE, 856 MG TOTAL DOSE
     Route: 065
     Dates: start: 20111213, end: 20111215
  16. GENOXAL [Suspect]
     Active Substance: CYCLOPHOSPHAMIDE
     Indication: CHRONIC LYMPHOCYTIC LEUKAEMIA
     Dosage: COMPLETE DOSE, 1029 MG TOTAL DOSE
     Route: 065
     Dates: start: 20111213, end: 20111215
  17. FLUDARABINE [Suspect]
     Active Substance: FLUDARABINE PHOSPHATE
     Indication: CHRONIC LYMPHOCYTIC LEUKAEMIA
     Dosage: COMPLETE DOSE, 129 MG TOTAL DOSE
     Route: 065
     Dates: start: 20111213, end: 20111215
  18. FLUDARABINE [Suspect]
     Active Substance: FLUDARABINE PHOSPHATE
     Dosage: COMPLETE DOSE, 129 MG TOTAL DOSE
     Route: 065
     Dates: start: 20120403, end: 20120405

REACTIONS (4)
  - Urinary tract pain [Recovered/Resolved]
  - Neutrophil count decreased [Recovered/Resolved]
  - Neutrophil count decreased [Recovered/Resolved]
  - Neutrophil count decreased [Recovered/Resolved]

NARRATIVE: CASE EVENT DATE: 20120214
